FAERS Safety Report 16468379 (Version 1)
Quarter: 2019Q3

REPORT INFORMATION
  Report Type: Spontaneous
  Country: US (occurrence: US)
  Receive Date: 20190621
  Receipt Date: 20190621
  Transmission Date: 20191004
  Serious: Yes (Life-Threatening, Hospitalization)
  Sender: FDA-Public Use
  Company Number: None

PATIENT
  Age: 51 Year
  Sex: Female
  Weight: 52.62 kg

DRUGS (2)
  1. FORTEO [Suspect]
     Active Substance: TERIPARATIDE
     Indication: PRODUCT USED FOR UNKNOWN INDICATION
     Route: 058
  2. FORTEO [Concomitant]
     Active Substance: TERIPARATIDE
     Dates: start: 20131231

REACTIONS (1)
  - Respiratory failure [None]

NARRATIVE: CASE EVENT DATE: 20190607
